FAERS Safety Report 8048260-2 (Version None)
Quarter: 2012Q1

REPORT INFORMATION
  Report Type: 
  Country: None (occurrence: None)
  Receive Date: 20120117
  Receipt Date: 20120109
  Transmission Date: 20120608
  Serious: Yes (Hospitalization)
  Sender: FDA-Public Use
  Company Number: US-GENZYME-MOZO-1000617

PATIENT
  Age: 34 Year
  Sex: Female

DRUGS (1)
  1. MOZOBIL [Suspect]
     Indication: HAEMATOPOIETIC STEM CELL MOBILISATION
     Dosage: 480 MCG/KG, QD
     Route: 058
     Dates: start: 20111205, end: 20111205

REACTIONS (4)
  - PALPITATIONS [None]
  - SINUS TACHYCARDIA [None]
  - NIGHTMARE [None]
  - INJECTION SITE REACTION [None]
